FAERS Safety Report 4431508-0 (Version None)
Quarter: 2004Q3

REPORT INFORMATION
  Report Type: 
  Country: None (occurrence: None)
  Receive Date: 20040824
  Receipt Date: 20040220
  Transmission Date: 20050211
  Serious: Yes (Death, Life-Threatening, Hospitalization, Other)
  Sender: FDA-Public Use
  Company Number: PHBS2004DK02647

PATIENT
  Age: 85 Year
  Sex: Male

DRUGS (15)
  1. LAMISIL [Suspect]
     Indication: FUNGAL SKIN INFECTION
     Dosage: 250 MG, QD
     Route: 048
     Dates: start: 20040121
  2. SPIRIX [Interacting]
     Indication: OEDEMA
     Dosage: 25 MG/D
  3. FUROSEMIDE [Concomitant]
     Dosage: 120 MG/DAY
  4. AMARYL [Concomitant]
     Indication: DIABETES MELLITUS
     Dosage: 1 MG/D
  5. MAREVAN ^BRITISH DRUG HOUSES^ [Concomitant]
     Indication: ATRIAL FIBRILLATION
     Dosage: 2.5 MG/D
  6. ZYRTEC [Concomitant]
     Dosage: 10 MG/D
  7. JERN C [Concomitant]
     Indication: ANAEMIA
  8. CALCIUM W/VITAMIN D NOS [Concomitant]
  9. LACTULOSE [Concomitant]
  10. KALEORID [Interacting]
  11. ELOCON [Concomitant]
     Indication: SKIN DISORDER
  12. KALEORID [Concomitant]
  13. LOCOID [Concomitant]
  14. CIPROFLOXACIN [Concomitant]
     Indication: INFECTION
     Dates: start: 20040114
  15. LANATIN [Suspect]
     Dosage: 5 UNK, UNK

REACTIONS (25)
  - ACUTE MYOCARDIAL INFARCTION [None]
  - BONE MARROW TOXICITY [None]
  - CARDIAC ARREST [None]
  - CARDIAC DISORDER [None]
  - CARDIAC FAILURE [None]
  - CARDIAC FAILURE ACUTE [None]
  - CARDIOMEGALY [None]
  - CEREBRAL ISCHAEMIA [None]
  - DILATATION VENTRICULAR [None]
  - DIZZINESS [None]
  - DYSPNOEA [None]
  - FALL [None]
  - FUNGAL SKIN INFECTION [None]
  - HAEMOGLOBIN DECREASED [None]
  - HYPOGLYCAEMIA [None]
  - INFECTION [None]
  - MEDICATION ERROR [None]
  - PANCYTOPENIA [None]
  - PLATELET COUNT DECREASED [None]
  - PULMONARY CONGESTION [None]
  - PULMONARY HYPERTENSION [None]
  - PULMONARY OEDEMA [None]
  - SEPSIS [None]
  - SYNCOPE [None]
  - WHITE BLOOD CELL COUNT DECREASED [None]
